FAERS Safety Report 5217979-0 (Version None)
Quarter: 2007Q1

REPORT INFORMATION
  Report Type: 
  Country: None (occurrence: None)
  Receive Date: 20061130
  Receipt Date: 20060705
  Transmission Date: 20070707
  Serious: Yes (Other)
  Sender: FDA-Public Use
  Company Number: US200607000856

PATIENT
  Sex: Female

DRUGS (5)
  1. ZYPREXA [Suspect]
     Indication: DEPRESSION
     Dosage: 5 MG, UNK, UNK;  2.5 MG, UNK, UNK
     Dates: start: 20060101
  2. ZYPREXA [Suspect]
     Indication: DEPRESSION
     Dosage: 5 MG, UNK, UNK;  2.5 MG, UNK, UNK
     Dates: start: 20060101
  3. LEXAPRO [Concomitant]
  4. PROTONIX [Concomitant]
  5. OMEPRAZOLE [Concomitant]

REACTIONS (3)
  - FALL [None]
  - HYPERHIDROSIS [None]
  - SYNCOPE [None]
